FAERS Safety Report 15431666 (Version 1)
Quarter: 2018Q4

REPORT INFORMATION
  Report Type: Spontaneous
  Country: ZA (occurrence: ZA)
  Receive Date: 20180926
  Receipt Date: 20180926
  Transmission Date: 20190204
  Serious: Yes (Hospitalization)
  Sender: FDA-Public Use
  Company Number: ZA-PFIZER INC-2018385562

PATIENT
  Age: 64 Year
  Sex: Male

DRUGS (4)
  1. STILPANE [CAFFEINE;CODEINE PHOSPHATE;MEPROBAMATE;PARACETAMOL] [Suspect]
     Active Substance: ACETAMINOPHEN\CAFFEINE\CODEINE PHOSPHATE\MEPROBAMATE
     Dosage: UNK
  2. LOMANOR [Suspect]
     Active Substance: AMLODIPINE BESYLATE
     Dosage: 10 MG, UNK
  3. OMEZ [OMEPRAZOLE MAGNESIUM] [Suspect]
     Active Substance: OMEPRAZOLE MAGNESIUM
     Dosage: 20 MG, UNK
  4. CELEBREX [Suspect]
     Active Substance: CELECOXIB
     Dosage: 200 MG, UNK

REACTIONS (1)
  - Splenic haemorrhage [Unknown]
